FAERS Safety Report 15949811 (Version 1)
Quarter: 2019Q1

REPORT INFORMATION
  Report Type: Spontaneous
  Country: CA (occurrence: CA)
  Receive Date: 20190211
  Receipt Date: 20190211
  Transmission Date: 20190417
  Serious: Yes (Other)
  Sender: FDA-Public Use
  Company Number: CA-INDIVIOR INC.-INDV-117583-2019

PATIENT
  Sex: Female
  Weight: 68.03 kg

DRUGS (1)
  1. BUPRENORPHINE/NALOXONE [Suspect]
     Active Substance: BUPRENORPHINE\NALOXONE
     Indication: PRODUCT USED FOR UNKNOWN INDICATION
     Dosage: 80 MILLIGRAM, UNKNOWN
     Route: 060

REACTIONS (3)
  - Influenza like illness [Unknown]
  - Prescribed overdose [Unknown]
  - Product substitution issue [Unknown]
